FAERS Safety Report 6235015-4 (Version None)
Quarter: 2009Q2

REPORT INFORMATION
  Report Type: 
  Country: None (occurrence: None)
  Receive Date: 20090618
  Receipt Date: 20090605
  Transmission Date: 20091009
  Serious: Yes (Hospitalization)
  Sender: FDA-Public Use
  Company Number: SE-ELI_LILLY_AND_COMPANY-SE200906001641

PATIENT
  Age: 40 Year
  Sex: Female

DRUGS (5)
  1. FONTEX [Suspect]
     Indication: DEPRESSION
     Dosage: 30 MG, DAILY (1/D)
     Route: 048
     Dates: end: 20090315
  2. LERGIGAN [Concomitant]
  3. PROPAVAN [Concomitant]
  4. IKTORIVIL [Concomitant]
  5. ALVEDON [Concomitant]

REACTIONS (2)
  - BRONCHITIS [None]
  - PNEUMONIA [None]
